FAERS Safety Report 6315700-6 (Version None)
Quarter: 2009Q3

REPORT INFORMATION
  Report Type: 
  Country: None (occurrence: None)
  Receive Date: 20090818
  Receipt Date: 20090810
  Transmission Date: 20100115
  Serious: Yes (Hospitalization, Disabling)
  Sender: FDA-Public Use
  Company Number: SPV1-2009-01645

PATIENT
  Age: 23 Year
  Sex: Female
  Weight: 58 kg

DRUGS (3)
  1. VYVANSE [Suspect]
     Indication: ATTENTION DEFICIT/HYPERACTIVITY DISORDER
     Dosage: MG, 1X/DAY: QD, ORAL
     Route: 048
     Dates: start: 20080801, end: 20090601
  2. VYVANSE [Suspect]
     Indication: ATTENTION DEFICIT/HYPERACTIVITY DISORDER
     Dosage: MG, 1X/DAY: QD, ORAL
     Route: 048
     Dates: start: 20090601, end: 20090701
  3. ORAL CONTRACEPTIVE NOS (ORAL CONTRACEPTIVE NOS) [Concomitant]

REACTIONS (11)
  - ABDOMINAL PAIN UPPER [None]
  - CONFUSIONAL STATE [None]
  - GASTRIC DISORDER [None]
  - HALLUCINATION [None]
  - HEARING IMPAIRED [None]
  - INSOMNIA [None]
  - PARANOIA [None]
  - PHOTOPSIA [None]
  - PSYCHOTIC DISORDER [None]
  - VISION BLURRED [None]
  - WEIGHT DECREASED [None]
